FAERS Safety Report 7527749-6 (Version None)
Quarter: 2011Q2

REPORT INFORMATION
  Report Type: 
  Country: None (occurrence: None)
  Receive Date: 20110607
  Receipt Date: 20110527
  Transmission Date: 20111010
  Serious: Yes (Other)
  Sender: FDA-Public Use
  Company Number: DE-NOVOPROD-328967

PATIENT
  Age: 57 Year
  Sex: Male
  Weight: 85.9 kg

DRUGS (1)
  1. VICTOZA [Suspect]
     Indication: DIABETES MELLITUS
     Dosage: 1 UNK, QD
     Route: 058
     Dates: start: 20101201

REACTIONS (1)
  - PANCREATITIS [None]
